FAERS Safety Report 14228055 (Version 4)
Quarter: 2019Q4

REPORT INFORMATION
  Report Type: Report from Study
  Country: US (occurrence: US)
  Receive Date: 20171127
  Receipt Date: 20191023
  Transmission Date: 20200122
  Serious: Yes (Death, Hospitalization)
  Sender: FDA-Public Use
  Company Number: US-ACTELION-A-US2017-162843

PATIENT
  Age: 70 Year
  Sex: Female

DRUGS (19)
  1. VIT B1 [Concomitant]
     Active Substance: THIAMINE HYDROCHLORIDE
  2. PREDNISONE. [Concomitant]
     Active Substance: PREDNISONE
  3. NITROGLYCERIN. [Concomitant]
     Active Substance: NITROGLYCERIN
  4. OPSUMIT [Suspect]
     Active Substance: MACITENTAN
     Dosage: 10 MG, QD
     Route: 048
  5. VITAMIN B12 [Concomitant]
     Active Substance: CYANOCOBALAMIN
  6. INCRUSE ELLIPTA [Concomitant]
     Active Substance: UMECLIDINIUM BROMIDE
  7. ASPIRIN. [Concomitant]
     Active Substance: ASPIRIN
  8. ALDACTONE [Concomitant]
     Active Substance: SPIRONOLACTONE
  9. WELLBUTRIN [Concomitant]
     Active Substance: BUPROPION HYDROCHLORIDE
  10. BOTOX [Concomitant]
     Active Substance: ONABOTULINUMTOXINA
  11. FENTANYL. [Concomitant]
     Active Substance: FENTANYL
  12. TOPROL XL [Concomitant]
     Active Substance: METOPROLOL SUCCINATE
  13. NORFORMS [Concomitant]
  14. ALBUTEROL. [Concomitant]
     Active Substance: ALBUTEROL
  15. OMEPRAZOLE. [Concomitant]
     Active Substance: OMEPRAZOLE
  16. ADVAIR HFA [Concomitant]
     Active Substance: FLUTICASONE PROPIONATE\SALMETEROL XINAFOATE
  17. ENBREL [Concomitant]
     Active Substance: ETANERCEPT
  18. OPSUMIT [Suspect]
     Active Substance: MACITENTAN
     Indication: PULMONARY ARTERIAL HYPERTENSION
     Dosage: 10 MG, QD
     Route: 048
     Dates: start: 20160816
  19. LASIX [Concomitant]
     Active Substance: FUROSEMIDE

REACTIONS (14)
  - Sleep apnoea syndrome [Unknown]
  - Atrial fibrillation [Unknown]
  - Pneumonia [Unknown]
  - Cardiac failure congestive [Unknown]
  - Dyspnoea [Unknown]
  - Cardiac disorder [Unknown]
  - Chest pain [Recovered/Resolved]
  - Muscle tightness [Recovering/Resolving]
  - Agitation [Unknown]
  - Malaise [Unknown]
  - Coma [Unknown]
  - Oxygen saturation decreased [Unknown]
  - Death [Fatal]
  - Chronic obstructive pulmonary disease [Unknown]

NARRATIVE: CASE EVENT DATE: 20171011
